FAERS Safety Report 4380075-9 (Version None)
Quarter: 2004Q2

REPORT INFORMATION
  Report Type: 
  Country: None (occurrence: None)
  Receive Date: 20040617
  Receipt Date: 20020905
  Transmission Date: 20050107
  Serious: Yes (Hospitalization, Other)
  Sender: FDA-Public Use
  Company Number: US-MERCK-0209USA00468

PATIENT
  Age: 58 Year
  Sex: Female
  Weight: 64 kg

DRUGS (11)
  1. ELAVIL [Concomitant]
     Indication: SLEEP DISORDER THERAPY
     Route: 048
     Dates: start: 20000929
  2. SOMA [Concomitant]
     Route: 048
     Dates: start: 20000929, end: 20010801
  3. SOMA [Concomitant]
     Route: 048
     Dates: start: 20030801
  4. CYANOCOBALAMIN [Concomitant]
     Indication: ANAEMIA
     Route: 030
     Dates: start: 20000804
  5. DIPHENHYDRAMINE HYDROCHLORIDE [Concomitant]
     Route: 048
     Dates: start: 20000919
  6. PREMARIN [Concomitant]
     Route: 065
  7. INFED [Concomitant]
     Indication: ANAEMIA
     Route: 030
     Dates: start: 20000901
  8. ROBAXIN [Concomitant]
     Route: 048
     Dates: start: 20000508
  9. PRILOSEC [Concomitant]
     Route: 065
  10. VIOXX [Suspect]
     Indication: RHEUMATOID ARTHRITIS
     Route: 048
     Dates: start: 19990101, end: 20010801
  11. VIOXX [Suspect]
     Route: 048
     Dates: start: 20010801, end: 20010101

REACTIONS (16)
  - ANXIETY [None]
  - BRONCHIECTASIS [None]
  - CHOLELITHIASIS [None]
  - CORONARY ARTERY DISEASE [None]
  - DIVERTICULUM [None]
  - DRUG INEFFECTIVE [None]
  - GASTRITIS HAEMORRHAGIC [None]
  - HEPATITIS [None]
  - MYCOBACTERIUM AVIUM COMPLEX INFECTION [None]
  - MYOCARDIAL INFARCTION [None]
  - NAUSEA [None]
  - OTITIS EXTERNA [None]
  - PRURITUS [None]
  - RASH MORBILLIFORM [None]
  - UPPER RESPIRATORY TRACT INFECTION [None]
  - URINARY TRACT INFECTION [None]
